FAERS Safety Report 13284626 (Version 1)
Quarter: 2017Q1

REPORT INFORMATION
  Report Type: Spontaneous
  Country: US (occurrence: US)
  Receive Date: 20170301
  Receipt Date: 20170301
  Transmission Date: 20170428
  Serious: Yes (Other)
  Sender: FDA-Public Use
  Company Number: US-TEVA-743410USA

PATIENT
  Sex: Female

DRUGS (1)
  1. SIMVASTATIN. [Suspect]
     Active Substance: SIMVASTATIN
     Dosage: TOOK YEARS AGO
     Route: 065
     Dates: start: 201112, end: 2012

REACTIONS (3)
  - Crying [Unknown]
  - Iliac artery occlusion [Unknown]
  - Adverse event [Unknown]

NARRATIVE: CASE EVENT DATE: 2012
